FAERS Safety Report 4644481-7 (Version None)
Quarter: 2005Q2

REPORT INFORMATION
  Report Type: 
  Country: None (occurrence: None)
  Receive Date: 20050425
  Receipt Date: 20050425
  Transmission Date: 20051028
  Serious: Yes (Life-Threatening, Hospitalization, Other)
  Sender: FDA-Public Use
  Company Number: None

PATIENT
  Age: 75 Year
  Sex: Female

DRUGS (5)
  1. NABUMETONE [Suspect]
     Indication: STEVENS-JOHNSON SYNDROME
     Dosage: 500MG BID PO
     Route: 048
     Dates: start: 20041001, end: 20050331
  2. TRIAMPTERENE [Concomitant]
  3. HYDROCHLOROTHIAZIDE [Concomitant]
  4. AMLODIPINE [Concomitant]
  5. METOPROLOL TARTRATE [Concomitant]

REACTIONS (5)
  - CONJUNCTIVITIS [None]
  - DYSPHAGIA [None]
  - ERYTHEMA MULTIFORME [None]
  - PLEURAL EFFUSION [None]
  - STEVENS-JOHNSON SYNDROME [None]
